APPROVED DRUG PRODUCT: PASER
Active Ingredient: AMINOSALICYLIC ACID
Strength: 4GM/PACKET
Dosage Form/Route: GRANULE, DELAYED RELEASE;ORAL
Application: A074346 | Product #001
Applicant: ADAPTIS PHARMA PRIVATE LTD
Approved: Jun 30, 1994 | RLD: No | RS: Yes | Type: RX